FAERS Safety Report 12723026 (Version 1)
Quarter: 2016Q3

REPORT INFORMATION
  Report Type: Spontaneous
  Country: CH (occurrence: CH)
  Receive Date: 20160908
  Receipt Date: 20160908
  Transmission Date: 20161109
  Serious: Yes (Other)
  Sender: FDA-Public Use
  Company Number: CH-ROCHE-1823577

PATIENT
  Age: 40 Year
  Sex: Female

DRUGS (5)
  1. ANTABUS [Suspect]
     Active Substance: DISULFIRAM
     Indication: ALCOHOLISM
     Dosage: FORM OF ADMINISTRATION: UNSPECIFIED
     Route: 048
     Dates: end: 20150914
  2. FOLIC ACID. [Concomitant]
     Active Substance: FOLIC ACID
     Indication: PROPHYLAXIS OF NEURAL TUBE DEFECT
     Dosage: FORM OF ADMINISTRATION: UNSPECIFIED
     Route: 048
     Dates: start: 20150919
  3. DEPAKINE CHRONO [Suspect]
     Active Substance: VALPROATE SODIUM
     Indication: IDIOPATHIC GENERALISED EPILEPSY
     Dosage: COATED TABLETS, FILM
     Route: 048
     Dates: end: 20150922
  4. DOLOPHINE [Suspect]
     Active Substance: METHADONE HYDROCHLORIDE
     Indication: DRUG WITHDRAWAL SYNDROME
     Dosage: FORM OF ADMINISTRATION: UNSPECIFIED
     Route: 048
  5. RIVOTRIL [Suspect]
     Active Substance: CLONAZEPAM
     Indication: IDIOPATHIC GENERALISED EPILEPSY
     Route: 048
     Dates: start: 20150922

REACTIONS (2)
  - Abortion spontaneous [Unknown]
  - Exposure during pregnancy [Unknown]

NARRATIVE: CASE EVENT DATE: 20150925
